FAERS Safety Report 8032696-X (Version None)
Quarter: 2012Q1

REPORT INFORMATION
  Report Type: 
  Country: None (occurrence: None)
  Receive Date: 20120110
  Receipt Date: 20120106
  Transmission Date: 20120608
  Serious: Yes (Hospitalization, Other)
  Sender: FDA-Public Use
  Company Number: JP-BAYER-2011-080387

PATIENT
  Age: 72 Year
  Sex: Male
  Weight: 61.224 kg

DRUGS (33)
  1. NEXAVAR [Suspect]
     Indication: HEPATIC NEOPLASM MALIGNANT
     Dosage: 200 MG, QD
     Route: 048
     Dates: start: 20100804, end: 20101115
  2. LASIX [Suspect]
     Dosage: 20 MG, QD
     Route: 048
     Dates: end: 20100913
  3. ALBUMIN (HUMAN) [Concomitant]
     Dosage: DAILY DOSE 50 ML
     Route: 042
     Dates: start: 20101115, end: 20101115
  4. LASIX [Suspect]
     Dosage: 40 MG, QD
     Route: 048
     Dates: start: 20101019
  5. URSO 250 [Concomitant]
     Dosage: DAILY DOSE 600 MG
     Route: 048
  6. ALDACTONE [Concomitant]
     Dosage: DAILY DOSE 50 MG
     Route: 048
     Dates: start: 20100914, end: 20100927
  7. MYSER [Concomitant]
     Dosage: UNK
     Route: 061
     Dates: start: 20100803, end: 20100803
  8. SHAKUYAKUKANZOUTOU [Concomitant]
     Dosage: 1 DF, PRN
     Route: 048
     Dates: start: 20101004
  9. ALBUMIN (HUMAN) [Concomitant]
     Dosage: DAILY DOSE 50 ML
     Route: 042
     Dates: start: 20101101
  10. NOVORAPID [Concomitant]
     Dosage: DAILY DOSE 30 U
     Route: 058
     Dates: start: 20101126, end: 20101202
  11. NEXAVAR [Suspect]
     Dosage: 400 MG, QOD
     Route: 048
     Dates: start: 20101207, end: 20110110
  12. LASIX [Suspect]
     Dosage: 20 MG, OW
     Route: 042
     Dates: start: 20101101
  13. LIVACT [Concomitant]
     Dosage: DAILY DOSE 3 DF
     Route: 048
  14. AMARYL [Concomitant]
     Dosage: DAILY DOSE 6 MG
     Route: 048
     Dates: end: 20101018
  15. ALDACTONE [Concomitant]
     Dosage: DAILY DOSE 50 MG
     Route: 048
     Dates: start: 20100914, end: 20100927
  16. NOVORAPID [Concomitant]
     Dosage: DAILY DOSE 42 U
     Route: 058
     Dates: start: 20101203
  17. NEXAVAR [Suspect]
     Dosage: 400 MG, QOD
     Route: 048
     Dates: start: 20110322
  18. LASIX [Suspect]
     Dosage: 60 MG, QD
     Route: 048
     Dates: start: 20100928, end: 20101018
  19. LASIX [Suspect]
     Dosage: 20 MG, ONCE
     Route: 042
     Dates: start: 20101115, end: 20101115
  20. BASEN [Concomitant]
     Dosage: DAILY DOSE .9 MG
     Route: 048
  21. AMARYL [Concomitant]
     Dosage: DAILY DOSE 3 MG
     Route: 048
     Dates: start: 20101019
  22. FAMOTIDINE [Concomitant]
     Dosage: DAILY DOSE 20 MG
     Route: 048
  23. HOCHUUEKKITOU [Concomitant]
     Dosage: DAILY DOSE 3 DF
     Route: 048
     Dates: start: 20100818
  24. BIO THREE [CLOSTRID BUTYRICUM,LACTOBAC ACIDOPH,SACCHAROM BOULAR] [Concomitant]
     Dosage: DAILY DOSE 3 DF
     Route: 048
     Dates: start: 20101122
  25. MAGNESIUM OXIDE [Concomitant]
     Dosage: DAILY DOSE 1.5 G
     Route: 048
     Dates: start: 20101122
  26. LASIX [Suspect]
     Dosage: 40 MG, QD
     Route: 048
     Dates: start: 20100914, end: 20100927
  27. AMARYL [Concomitant]
     Dosage: DAILY DOSE 3 MG
     Route: 048
     Dates: start: 20101019
  28. ALDACTONE [Concomitant]
     Dosage: DAILY DOSE 25 MG
     Route: 048
     Dates: end: 20100913
  29. ALDACTONE [Concomitant]
     Dosage: DAILY DOSE 75 MG
     Route: 048
     Dates: start: 20100928, end: 20101018
  30. HIRUDOID [Concomitant]
     Dosage: UNK
     Route: 061
     Dates: start: 20100803
  31. ALDACTONE [Concomitant]
     Dosage: DAILY DOSE 50 MG
     Route: 048
     Dates: start: 20101019
  32. NOVORAPID [Concomitant]
     Dosage: DAILY DOSE 18 U
     Route: 058
     Dates: start: 20101119, end: 20101122
  33. NOVORAPID [Concomitant]
     Dosage: DAILY DOSE 24 U
     Route: 058
     Dates: start: 20101123, end: 20101125

REACTIONS (9)
  - DIABETES MELLITUS [None]
  - TRANSAMINASES INCREASED [None]
  - HYPERTENSION [None]
  - HYPONATRAEMIA [None]
  - ASCITES [None]
  - DYSPHONIA [None]
  - HEPATIC ENCEPHALOPATHY [None]
  - PYREXIA [None]
  - MUSCLE SPASMS [None]
